FAERS Safety Report 9767218 (Version 2)
Quarter: 2014Q4

REPORT INFORMATION
  Report Type: Spontaneous
  Country: US (occurrence: US)
  Receive Date: 20131217
  Receipt Date: 20141217
  Transmission Date: 20150529
  Serious: No
  Sender: FDA-Public Use
  Company Number: US-GLAXOSMITHKLINE-A1044179A

PATIENT

DRUGS (2)
  1. VOTRIENT [Suspect]
     Active Substance: PAZOPANIB HYDROCHLORIDE
  2. VOTRIENT [Suspect]
     Active Substance: PAZOPANIB HYDROCHLORIDE
     Indication: SOFT TISSUE SARCOMA
     Dosage: 200 MG TABLETS, 4 TABLETS DAILY, 800 MG DAILYFU- DOSE REDUCED TO 600MG DAILY
     Route: 048

REACTIONS (4)
  - Platelet count decreased [Unknown]
  - Blood test abnormal [Unknown]
  - Hypertension [Unknown]
  - Skin disorder [Unknown]

NARRATIVE: CASE EVENT DATE: 20131001
